FAERS Safety Report 21012609 (Version 1)
Quarter: 2022Q2

REPORT INFORMATION
  Report Type: Report from Study
  Country: JP (occurrence: JP)
  Receive Date: 20220627
  Receipt Date: 20220627
  Transmission Date: 20220721
  Serious: Yes (Death, Hospitalization, Other)
  Sender: FDA-Public Use
  Company Number: JP-CELGENE-JPN-20191107065

PATIENT
  Age: 78 Year
  Sex: Male
  Weight: 67 kg

DRUGS (21)
  1. AZACITIDINE [Suspect]
     Active Substance: AZACITIDINE
     Indication: Angioimmunoblastic T-cell lymphoma
     Route: 048
     Dates: start: 20190719, end: 20190801
  2. AZACITIDINE [Suspect]
     Active Substance: AZACITIDINE
     Route: 048
     Dates: start: 20191114, end: 20191119
  3. AZACITIDINE [Suspect]
     Active Substance: AZACITIDINE
     Route: 048
     Dates: start: 20191120, end: 20200918
  4. AZACITIDINE [Suspect]
     Active Substance: AZACITIDINE
     Route: 048
     Dates: start: 20200925
  5. AZACITIDINE [Suspect]
     Active Substance: AZACITIDINE
     Route: 048
     Dates: start: 20210409, end: 20210422
  6. ASPIRIN [Concomitant]
     Active Substance: ASPIRIN
     Indication: Carotid artery stenosis
     Dosage: 100 MILLIGRAM
     Route: 048
     Dates: start: 2011
  7. PREDNISOLONE [Concomitant]
     Active Substance: PREDNISOLONE
     Indication: Angioimmunoblastic T-cell lymphoma
     Dosage: FREQUENCY TEXT: UNKNOWN?UNKNOWN
     Route: 065
     Dates: start: 20170208, end: 20170609
  8. PREDNISOLONE [Concomitant]
     Active Substance: PREDNISOLONE
     Dosage: 10 MILLIGRAM
     Route: 048
     Dates: start: 20180802
  9. PREDNISOLONE [Concomitant]
     Active Substance: PREDNISOLONE
     Dosage: FREQUENCY TEXT: UNKNOWN?UNKNOWN
     Route: 048
     Dates: start: 20210507, end: 20210601
  10. SULFAMETHOXAZOLE\TRIMETHOPRIM [Concomitant]
     Active Substance: SULFAMETHOXAZOLE\TRIMETHOPRIM
     Indication: Infection prophylaxis
     Dosage: DAILY DOSE : .5 TABLET?UNIT DOSE : .5 TABLET?1 DOSAGE FORM= 0.5 UNITS NOS
     Route: 048
     Dates: start: 20190122
  11. ALFACALCIDOL [Concomitant]
     Active Substance: ALFACALCIDOL
     Indication: Osteoporosis prophylaxis
     Route: 048
     Dates: start: 20181227
  12. HYDROCORTISONE BUTYRATE [Concomitant]
     Active Substance: HYDROCORTISONE BUTYRATE
     Indication: Pruritus
     Dosage: 1 APPLICATION
     Route: 061
     Dates: start: 20190125, end: 20190803
  13. LOPERAMIDE HYDROCHLORIDE [Concomitant]
     Active Substance: LOPERAMIDE HYDROCHLORIDE
     Indication: Diarrhoea
     Dosage: 2 MILLIGRAM
     Route: 048
     Dates: start: 20190719, end: 20190719
  14. LOPERAMIDE HYDROCHLORIDE [Concomitant]
     Active Substance: LOPERAMIDE HYDROCHLORIDE
     Indication: Prophylaxis against diarrhoea
     Dosage: 2 MILLIGRAM
     Route: 048
     Dates: start: 20190720, end: 20190724
  15. GRANISETRON HYDROCHLORIDE [Concomitant]
     Active Substance: GRANISETRON HYDROCHLORIDE
     Indication: Vomiting
     Dosage: 1 MILLIGRAM
     Route: 042
     Dates: start: 20190719, end: 20190719
  16. GRANISETRON HYDROCHLORIDE [Concomitant]
     Active Substance: GRANISETRON HYDROCHLORIDE
     Dosage: 1 MILLIGRAM
     Route: 048
     Dates: start: 20190722
  17. DEXTROSE\POTASSIUM CHLORIDE\SODIUM CHLORIDE\SODIUM LACTATE [Concomitant]
     Active Substance: DEXTROSE\POTASSIUM CHLORIDE\SODIUM CHLORIDE\SODIUM LACTATE
     Indication: Prophylaxis against dehydration
     Dosage: 1000 MILLILITER
     Route: 042
     Dates: start: 20190719, end: 20190723
  18. METOCLOPRAMIDE HYDROCHLORIDE [Concomitant]
     Active Substance: METOCLOPRAMIDE HYDROCHLORIDE
     Indication: Vomiting
     Dosage: 10 MILLIGRAM
     Route: 042
     Dates: start: 20190719, end: 20190719
  19. HYDROXYZINE HYDROCHLORIDE [Concomitant]
     Active Substance: HYDROXYZINE HYDROCHLORIDE
     Indication: Vomiting
     Dosage: 25 MILLIGRAM
     Route: 042
     Dates: start: 20190719, end: 20190719
  20. MAGNESIUM OXIDE [Concomitant]
     Active Substance: MAGNESIUM OXIDE
     Indication: Constipation
     Dosage: FREQUENCY TEXT: UNKNOWN?UNKNOWN
     Route: 065
     Dates: start: 20190726
  21. CANDESARTAN CILEXETIL [Concomitant]
     Active Substance: CANDESARTAN CILEXETIL
     Indication: Carotid artery stenosis
     Route: 065
     Dates: start: 2011, end: 20190722

REACTIONS (1)
  - Malignant neoplasm progression [Fatal]

NARRATIVE: CASE EVENT DATE: 20190722
